FAERS Safety Report 4879244-0 (Version None)
Quarter: 2005Q4

REPORT INFORMATION
  Report Type: 
  Country: None (occurrence: None)
  Receive Date: 20051205
  Receipt Date: 20050322
  Transmission Date: 20060501
  Serious: Yes (Hospitalization)
  Sender: FDA-Public Use
  Company Number: 2005-126645-NL

PATIENT
  Age: 40 Year
  Sex: Female
  Weight: 113.4 kg

DRUGS (2)
  1. NUVARING [Suspect]
     Indication: CONTRACEPTION
     Dosage: VAGINAL, INSERT 1 RING X28 DAYS X 3 CYCLES, THEN 1 RING X21 DAYS AND REMOVE X7 DAYS X 1 CYCLE, THEN
     Dates: start: 20040601, end: 20050301
  2. DYAZIDE [Concomitant]

REACTIONS (1)
  - THROMBOSIS [None]
